FAERS Safety Report 20066101 (Version 1)
Quarter: 2021Q4

REPORT INFORMATION
  Report Type: Report from Study
  Country: US (occurrence: US)
  Receive Date: 20211114
  Receipt Date: 20211114
  Transmission Date: 20220304
  Serious: Yes (Other)
  Sender: FDA-Public Use
  Company Number: US-ABBVIE-21K-163-4153674-00

PATIENT
  Sex: Female

DRUGS (1)
  1. IMBRUVICA [Suspect]
     Active Substance: IBRUTINIB
     Indication: Chronic lymphocytic leukaemia
     Route: 048
     Dates: start: 202010, end: 202111

REACTIONS (2)
  - Intestinal obstruction [Unknown]
  - Post procedural stroke [Unknown]

NARRATIVE: CASE EVENT DATE: 20210101
